FAERS Safety Report 19865573 (Version 17)
Quarter: 2022Q2

REPORT INFORMATION
  Report Type: Report from Study
  Country: PT (occurrence: PT)
  Receive Date: 20210922
  Receipt Date: 20220414
  Transmission Date: 20220720
  Serious: Yes (Disabling, Other)
  Sender: FDA-Public Use
  Company Number: PT-ABBVIE-20K-130-3682193-00

PATIENT
  Age: 67 Year
  Sex: Female

DRUGS (22)
  1. CARBIDOPA\LEVODOPA [Suspect]
     Active Substance: CARBIDOPA\LEVODOPA
     Indication: Parkinson^s disease
     Dosage: 20 MG + 5 MG MORNING DOSE:16CC; MAINTENANCE:6.4CC
     Route: 050
     Dates: start: 20201120, end: 20201204
  2. CARBIDOPA\LEVODOPA [Suspect]
     Active Substance: CARBIDOPA\LEVODOPA
     Dosage: 20 MG + 5 MG MORNING DOSE:17CC; MAINTENANCE:6.6CC
     Route: 050
     Dates: start: 20201204
  3. CARBIDOPA\LEVODOPA [Suspect]
     Active Substance: CARBIDOPA\LEVODOPA
     Dosage: 20 MG + 5 MG MD:17CC; MAINTENANCE:7CC ED 2CC; BLOCKADE LEVEL LL2
     Route: 050
     Dates: end: 2021
  4. CARBIDOPA\LEVODOPA [Suspect]
     Active Substance: CARBIDOPA\LEVODOPA
     Dosage: MORNING:17CC;MAINTAIN:7.3CC/H;EXTRA:2.0CC
     Route: 050
     Dates: start: 202101, end: 20210209
  5. CARBIDOPA\LEVODOPA [Suspect]
     Active Substance: CARBIDOPA\LEVODOPA
     Dosage: 20 MG + 5 MG,MORNING:17CC;MAINTAIN:7.6CC;EXTRA:2.0CC
     Route: 050
     Dates: start: 20210209, end: 20210325
  6. CARBIDOPA\LEVODOPA [Suspect]
     Active Substance: CARBIDOPA\LEVODOPA
     Dosage: 20 MG + 5 MG MORNING:17CC;MAINTEN:7.9CC/H;EXTRA:2.0CC
     Route: 050
     Dates: start: 20210325, end: 20211109
  7. CARBIDOPA\LEVODOPA [Suspect]
     Active Substance: CARBIDOPA\LEVODOPA
     Dosage: 20 MG + 5 MG?MORNIN:17CC;MAINTEN:8,1 CC/H;EXTRA:2CC
     Route: 050
     Dates: start: 20211109, end: 20220306
  8. CARBIDOPA\LEVODOPA [Suspect]
     Active Substance: CARBIDOPA\LEVODOPA
     Route: 050
  9. CARBIDOPA\LEVODOPA [Suspect]
     Active Substance: CARBIDOPA\LEVODOPA
     Route: 050
  10. CARBIDOPA\LEVODOPA [Suspect]
     Active Substance: CARBIDOPA\LEVODOPA
     Dosage: MORNIN:17CC;MAINTEN:8,1 CC/H;EXTRA:2CC?20 MG + 5 MG
     Route: 050
     Dates: start: 20220307, end: 202204
  11. CARBIDOPA\LEVODOPA [Suspect]
     Active Substance: CARBIDOPA\LEVODOPA
     Dosage: MORN:19CC;MAINT:8.4CC/H;EXTRA:2CC, 20 MG + 5 MG
     Route: 050
     Dates: start: 202204
  12. CARBIDOPA\LEVODOPA [Suspect]
     Active Substance: CARBIDOPA\LEVODOPA
     Route: 050
  13. ALPRAZOLAM [Concomitant]
     Active Substance: ALPRAZOLAM
     Indication: Product used for unknown indication
  14. CLONAZEPAM [Concomitant]
     Active Substance: CLONAZEPAM
     Indication: Product used for unknown indication
     Dates: end: 202203
  15. CLOZAPINE [Concomitant]
     Active Substance: CLOZAPINE
     Indication: Product used for unknown indication
     Dates: end: 202203
  16. CHOLECALCIFEROL [Concomitant]
     Active Substance: CHOLECALCIFEROL
     Indication: Product used for unknown indication
  17. DOMPERIDONE [Concomitant]
     Active Substance: DOMPERIDONE
     Indication: Product used for unknown indication
  18. DULOXETINE [Concomitant]
     Active Substance: DULOXETINE
     Indication: Product used for unknown indication
  19. SINEMET CR [Concomitant]
     Active Substance: CARBIDOPA\LEVODOPA
     Indication: Product used for unknown indication
  20. PANTOPRAZOLE [Concomitant]
     Active Substance: PANTOPRAZOLE
     Indication: Prophylaxis
  21. ACETAMINOPHEN [Concomitant]
     Active Substance: ACETAMINOPHEN
     Indication: Torticollis
  22. MIRTAZAPINE [Concomitant]
     Active Substance: MIRTAZAPINE
     Indication: Product used for unknown indication
     Dates: end: 202203

REACTIONS (35)
  - Spinal cord compression [Not Recovered/Not Resolved]
  - Gastric aspiration procedure [Recovered/Resolved]
  - Procedural haemorrhage [Recovered/Resolved]
  - Gait disturbance [Not Recovered/Not Resolved]
  - Stoma site inflammation [Recovered/Resolved]
  - Stoma site discharge [Recovered/Resolved]
  - Stoma site hypergranulation [Not Recovered/Not Resolved]
  - Torticollis [Recovered/Resolved]
  - Discomfort [Not Recovered/Not Resolved]
  - Loss of personal independence in daily activities [Unknown]
  - Parkinsonian gait [Unknown]
  - Depressed mood [Unknown]
  - Off label use [Recovered/Resolved]
  - Peripheral sensory neuropathy [Not Recovered/Not Resolved]
  - Drooling [Not Recovered/Not Resolved]
  - Muscle spasticity [Not Recovered/Not Resolved]
  - Joint ankylosis [Unknown]
  - Hypophagia [Not Recovered/Not Resolved]
  - Dysphagia [Not Recovered/Not Resolved]
  - Dystonia [Not Recovered/Not Resolved]
  - Dysphonia [Not Recovered/Not Resolved]
  - Torticollis [Recovered/Resolved]
  - Fatigue [Recovering/Resolving]
  - Hallucination, visual [Unknown]
  - Hallucination [Recovered/Resolved]
  - Freezing phenomenon [Unknown]
  - Bradykinesia [Recovered/Resolved]
  - Stoma site infection [Recovered/Resolved]
  - Stoma site discharge [Recovered/Resolved]
  - Therapeutic product effect incomplete [Recovered/Resolved]
  - Stoma complication [Recovered/Resolved]
  - Stoma site discharge [Recovered/Resolved]
  - Stoma site erythema [Recovered/Resolved]
  - Bradykinesia [Recovering/Resolving]
  - Device dislocation [Recovered/Resolved]

NARRATIVE: CASE EVENT DATE: 20200101
